FAERS Safety Report 11856504 (Version 1)
Quarter: 2015Q4

REPORT INFORMATION
  Report Type: Spontaneous
  Country: US (occurrence: US)
  Receive Date: 20151221
  Receipt Date: 20151221
  Transmission Date: 20160305
  Serious: No
  Sender: FDA-Public Use
  Company Number: US-AVANIR PHARMACEUTICALS, INC.-2015NUEUSA00485

PATIENT
  Sex: Female

DRUGS (1)
  1. NUEDEXTA [Suspect]
     Active Substance: DEXTROMETHORPHAN HYDROBROMIDE\QUINIDINE SULFATE
     Indication: AFFECT LABILITY

REACTIONS (11)
  - Medial tibial stress syndrome [Unknown]
  - Anger [Unknown]
  - Tremor [Unknown]
  - Adverse event [Unknown]
  - Depressed mood [Unknown]
  - Muscular weakness [Unknown]
  - Muscle spasms [Unknown]
  - Anxiety [Unknown]
  - Crying [Unknown]
  - Drug dose omission [Unknown]
  - Fatigue [Unknown]
